FAERS Safety Report 10027446 (Version 1)
Quarter: 2014Q1

REPORT INFORMATION
  Report Type: Spontaneous
  Country: FR (occurrence: None)
  Receive Date: 20140318
  Receipt Date: 20140318
  Transmission Date: 20141002
  Serious: Yes (Hospitalization)
  Sender: FDA-Public Use
  Company Number: AXC-2014-000169

PATIENT
  Age: 58 Year
  Sex: Female

DRUGS (2)
  1. PYLERA (BISMUTH SUBCITRATE POTASSIUM, METRONIDAZOLE, TETRACYCLINE HYDROCHLORIDE) CAPSULE [Suspect]
     Indication: HELICOBACTER INFECTION
     Route: 048
     Dates: start: 20130924, end: 20130929
  2. RYTHMOL [Concomitant]

REACTIONS (2)
  - Convulsion [None]
  - Transaminases abnormal [None]
